FAERS Safety Report 5564601-X (Version None)
Quarter: 2007Q4

REPORT INFORMATION
  Report Type: 
  Country: None (occurrence: None)
  Receive Date: 20071218
  Receipt Date: 20071207
  Transmission Date: 20080405
  Serious: No
  Sender: FDA-Public Use
  Company Number: JP-AVENTIS-200711225JP

PATIENT
  Age: 61 Year
  Sex: Female

DRUGS (2)
  1. TAXOTERE [Suspect]
     Route: 041
     Dates: start: 20070508, end: 20070508
  2. CDDP [Concomitant]
     Dates: start: 20070508, end: 20070508

REACTIONS (1)
  - ALTERED STATE OF CONSCIOUSNESS [None]
